FAERS Safety Report 9406900 (Version 2)
Quarter: 2014Q1

REPORT INFORMATION
  Report Type: Spontaneous
  Country: BR (occurrence: BR)
  Receive Date: 20130718
  Receipt Date: 20140324
  Transmission Date: 20141002
  Serious: No
  Sender: FDA-Public Use
  Company Number: BR-ROCHE-1078053

PATIENT
  Sex: Female

DRUGS (3)
  1. ROACUTAN [Suspect]
     Indication: ACNE
     Route: 048
     Dates: start: 20120528, end: 20130130
  2. ROACUTAN [Suspect]
     Route: 048
     Dates: start: 20120530, end: 20130130
  3. CELEBRA [Suspect]
     Indication: PAIN
     Route: 065

REACTIONS (9)
  - Chest pain [Recovered/Resolved]
  - Pain [Recovered/Resolved]
  - Blood cholesterol increased [Recovered/Resolved]
  - Blood triglycerides increased [Unknown]
  - Blood pressure increased [Recovered/Resolved]
  - Arthralgia [Recovered/Resolved]
  - Arthralgia [Recovered/Resolved]
  - Skin exfoliation [Recovered/Resolved]
  - Pain in extremity [Recovered/Resolved]
